FAERS Safety Report 4587662-3 (Version None)
Quarter: 2005Q1

REPORT INFORMATION
  Report Type: 
  Country: None (occurrence: None)
  Receive Date: 20050125
  Receipt Date: 20041005
  Transmission Date: 20050727
  Serious: No
  Sender: FDA-Public Use
  Company Number: USA040977597

PATIENT
  Age: 61 Year
  Sex: Female
  Weight: 56 kg

DRUGS (5)
  1. FORTEO [Suspect]
     Indication: OSTEOPOROSIS
     Dosage: 20 UG/1 DAY
     Dates: start: 20040816
  2. METHOTREXATE [Concomitant]
  3. PREDNISONE [Concomitant]
  4. CALCIUM GLUCONATE [Concomitant]
  5. MULTI-VITAMIN [Concomitant]

REACTIONS (1)
  - BACK PAIN [None]
